FAERS Safety Report 21273923 (Version 2)
Quarter: 2022Q3

REPORT INFORMATION
  Report Type: Report from Study
  Country: US (occurrence: US)
  Receive Date: 20220831
  Receipt Date: 20220911
  Transmission Date: 20221027
  Serious: Yes (Other)
  Sender: FDA-Public Use
  Company Number: US-NOVARTISPH-NVSC2022US195184

PATIENT
  Sex: Female
  Weight: 86.168 kg

DRUGS (6)
  1. KESIMPTA [Suspect]
     Active Substance: OFATUMUMAB
     Indication: Multiple sclerosis
     Dosage: UNK, QW (Q7D LOADING DOSE X 4)
     Route: 065
  2. KESIMPTA [Suspect]
     Active Substance: OFATUMUMAB
     Indication: Relapsing-remitting multiple sclerosis
  3. ABRAXANE [Suspect]
     Active Substance: PACLITAXEL
     Indication: Breast cancer stage IV
     Dosage: UNK, TIW
     Route: 065
  4. OLMESARTAN [Concomitant]
     Active Substance: OLMESARTAN
     Indication: Product used for unknown indication
     Dosage: 20 MG
     Route: 065
  5. ZOMETA [Concomitant]
     Active Substance: ZOLEDRONIC ACID
     Indication: Metastases to bone
     Dosage: UNK
     Route: 065
  6. VITAMIN D [Concomitant]
     Active Substance: VITAMIN D NOS
     Indication: Product used for unknown indication
     Dosage: 5000 IU, QD
     Route: 065

REACTIONS (16)
  - Neoplasm malignant [Unknown]
  - Upper motor neurone lesion [Unknown]
  - Multiple sclerosis [Unknown]
  - Pain [Unknown]
  - Vision blurred [Unknown]
  - Oedema [Unknown]
  - Erythema [Unknown]
  - Postural tremor [Unknown]
  - Coordination abnormal [Unknown]
  - Hyperreflexia [Unknown]
  - Hoffmann^s sign [Unknown]
  - Extensor plantar response [Unknown]
  - Gait disturbance [Unknown]
  - Restless legs syndrome [Not Recovered/Not Resolved]
  - Blood glucose increased [Unknown]
  - Amnesia [Unknown]
